FAERS Safety Report 20850104 (Version 2)
Quarter: 2023Q1

REPORT INFORMATION
  Report Type: Other
  Country: CN (occurrence: CN)
  Receive Date: 20220519
  Receipt Date: 20230131
  Transmission Date: 20230417
  Serious: Yes (Death)
  Sender: FDA-Public Use
  Company Number: CN-BoehringerIngelheim-2022-BI-170186

PATIENT

DRUGS (1)
  1. ALTEPLASE [Suspect]
     Active Substance: ALTEPLASE
     Indication: Ischaemic stroke
     Dosage: (0.9 MG/KG, MAXIMUM 90 MG; 10% BOLUS FOLLOWED BY A 60-MIN INFUSION)
     Route: 042

REACTIONS (1)
  - Brain herniation [Fatal]
